FAERS Safety Report 23240509 (Version 1)
Quarter: 2023Q4

REPORT INFORMATION
  Report Type: Spontaneous
  Country: US (occurrence: US)
  Receive Date: 20231129
  Receipt Date: 20231129
  Transmission Date: 20240110
  Serious: No
  Sender: FDA-Public Use
  Company Number: US-SA-SAC20231122000699

PATIENT
  Sex: Female

DRUGS (2)
  1. THYROGEN [Suspect]
     Active Substance: THYROTROPIN ALFA
     Indication: Diagnostic procedure
     Dosage: UNK
     Route: 030
  2. THYROGEN [Suspect]
     Active Substance: THYROTROPIN ALFA
     Indication: Therapeutic procedure

REACTIONS (2)
  - Injection site rash [Unknown]
  - Injection site swelling [Unknown]

NARRATIVE: CASE EVENT DATE: 20200101
